FAERS Safety Report 7768475 (Version 2)
Quarter: 2014Q1

REPORT INFORMATION
  Report Type: Spontaneous
  Country: US (occurrence: None)
  Receive Date: 20101228
  Receipt Date: 20140106
  Transmission Date: 20141002
  Serious: Yes (Death, Other)
  Sender: FDA-Public Use
  Company Number: 2010S1007732

PATIENT
  Sex: Male

DRUGS (13)
  1. SODIUM PHOSPHATE\SODIUM PHOSPHATE, MONOBASIC [Suspect]
     Indication: COLONOSCOPY
     Dosage: ; PO
     Route: 048
  2. ZESTORETIC (HYDROCHLOROTHIAZIDE, LISINOPRIL) [Concomitant]
  3. COUMADIN (WARFARIN SODIUM) [Concomitant]
  4. FLOMAX (TAMSULOSIN HYDROCHLORIDE) [Concomitant]
  5. NEUROTRONIN (GABAPENTIN) [Concomitant]
  6. AVODART (DUTASTERIDE) [Concomitant]
  7. ASPIRIN (ACETYLSALICYLIC ACID) [Concomitant]
  8. OCUVITE (ASCORBIC ACID, TOCOPHEROL, RETINOL) [Concomitant]
  9. NITROSTAT (GLYCERL TRINITRATE) [Concomitant]
  10. SONATA (ZALEPLON) [Concomitant]
  11. SOTALOL (SOTAOLOL) [Concomitant]
  12. ADVICOR (NICOTINIC ACID, LOVASTATIN) [Concomitant]
  13. BEXTRA (VALDECOXIB) [Concomitant]

REACTIONS (2)
  - Renal failure acute [None]
  - Nephrogenic anaemia [None]
